FAERS Safety Report 10891356 (Version 2)
Quarter: 2015Q2

REPORT INFORMATION
  Report Type: Report from Study
  Country: US (occurrence: US)
  Receive Date: 20150306
  Receipt Date: 20150615
  Transmission Date: 20150821
  Serious: Yes (Other)
  Sender: FDA-Public Use
  Company Number: US-SANOFI-AVENTIS-2013SA078532

PATIENT
  Sex: Male

DRUGS (2)
  1. AMPYRA [Concomitant]
     Active Substance: DALFAMPRIDINE
  2. AUBAGIO [Suspect]
     Active Substance: TERIFLUNOMIDE
     Indication: MULTIPLE SCLEROSIS
     Route: 048
     Dates: start: 20121120

REACTIONS (7)
  - Surgery [Unknown]
  - Muscular weakness [Unknown]
  - Diarrhoea [Unknown]
  - Limb discomfort [Not Recovered/Not Resolved]
  - Pollakiuria [Unknown]
  - Depression [Unknown]
  - Functional gastrointestinal disorder [Unknown]
